FAERS Safety Report 21737142 (Version 3)
Quarter: 2023Q1

REPORT INFORMATION
  Report Type: Spontaneous
  Country: IT (occurrence: IT)
  Receive Date: 20221216
  Receipt Date: 20230208
  Transmission Date: 20230418
  Serious: Yes (Death, Other)
  Sender: FDA-Public Use
  Company Number: IT-AMGEN-ITASP2022214527

PATIENT

DRUGS (2)
  1. BEVACIZUMAB [Suspect]
     Active Substance: BEVACIZUMAB
     Indication: Hepatocellular carcinoma
     Dosage: UNK
     Route: 065
  2. ATEZOLIZUMAB [Concomitant]
     Active Substance: ATEZOLIZUMAB
     Indication: Hepatocellular carcinoma
     Dosage: UNK

REACTIONS (6)
  - Death [Fatal]
  - Hepatocellular carcinoma [Unknown]
  - Off label use [Unknown]
  - Drug effective for unapproved indication [Unknown]
  - Therapy non-responder [Unknown]
  - Therapy partial responder [Unknown]
